FAERS Safety Report 4655496-7 (Version None)
Quarter: 2005Q2

REPORT INFORMATION
  Report Type: 
  Country: None (occurrence: None)
  Receive Date: 20050506
  Receipt Date: 20050429
  Transmission Date: 20051028
  Serious: Yes (Other)
  Sender: FDA-Public Use
  Company Number: US-MERCK-0505USA00178

PATIENT
  Age: 82 Year
  Sex: Male
  Weight: 77 kg

DRUGS (6)
  1. VIOXX [Suspect]
     Route: 048
     Dates: end: 20040930
  2. MOTRIN [Suspect]
     Indication: OSTEOARTHRITIS
     Route: 048
  3. FELDENE [Suspect]
     Indication: OSTEOARTHRITIS
     Route: 065
     Dates: end: 20050101
  4. OXYCODONE [Concomitant]
     Route: 048
  5. CALAN [Concomitant]
     Route: 048
  6. VERAPAMIL [Concomitant]
     Route: 048

REACTIONS (7)
  - BODY HEIGHT DECREASED [None]
  - COLON CANCER [None]
  - DIVERTICULUM [None]
  - GASTROINTESTINAL HAEMORRHAGE [None]
  - HAEMATEMESIS [None]
  - HAEMATOCHEZIA [None]
  - THROMBOSIS [None]
